FAERS Safety Report 9058718 (Version 1)
Quarter: 2013Q1

REPORT INFORMATION
  Report Type: Report from Study
  Country: GB (occurrence: GB)
  Receive Date: 20130204
  Receipt Date: 20130204
  Transmission Date: 20140127
  Serious: Yes (Hospitalization)
  Sender: FDA-Public Use
  Company Number: GB-BAXTER-2013BAX003775

PATIENT
  Age: 73 Year
  Sex: Female
  Weight: 92.25 kg

DRUGS (14)
  1. CYCLOPHOSPHAMIDE INJECTION 1G [Suspect]
     Indication: B-CELL LYMPHOMA
  2. PREDNISOLONE [Suspect]
     Indication: B-CELL LYMPHOMA
     Route: 065
  3. RITUXIMAB [Suspect]
     Indication: B-CELL LYMPHOMA
     Route: 042
     Dates: start: 20121129
  4. VINCRISTINE SULFATE [Suspect]
     Indication: B-CELL LYMPHOMA
     Route: 065
  5. ASPIRIN [Concomitant]
     Indication: PERIPHERAL VASCULAR DISORDER
     Route: 065
  6. CAPSAICIN [Concomitant]
     Indication: NEUROPATHY PERIPHERAL
     Route: 065
     Dates: start: 2007
  7. DOSULEPIN HYDROCHLORIDE [Concomitant]
     Indication: DEPRESSION
     Route: 065
  8. FUROSEMIDE [Concomitant]
     Indication: OEDEMA PERIPHERAL
     Route: 065
  9. GABAPENTIN [Concomitant]
     Indication: AUTONOMIC NEUROPATHY
     Route: 065
     Dates: start: 201208
  10. LEVOTHYROXINE SODIUM [Concomitant]
     Indication: HYPOTHYROIDISM
     Route: 065
  11. LISINOPRIL [Concomitant]
     Indication: HYPERTENSION
     Route: 065
  12. METFORMIN HYDROCHLORIDE [Concomitant]
     Indication: DIABETES MELLITUS
     Route: 065
  13. NOVOMIX [Concomitant]
     Indication: DIABETES MELLITUS
     Route: 065
  14. SIMVASTATIN [Concomitant]
     Indication: HYPERCHOLESTEROLAEMIA
     Route: 065
     Dates: start: 20121127

REACTIONS (1)
  - Lower respiratory tract infection [Recovered/Resolved]
